FAERS Safety Report 14048289 (Version 1)
Quarter: 2017Q4

REPORT INFORMATION
  Report Type: Spontaneous
  Country: US (occurrence: US)
  Receive Date: 20171005
  Receipt Date: 20171005
  Transmission Date: 20180321
  Serious: Yes (Hospitalization)
  Sender: FDA-Public Use
  Company Number: US-FRESENIUS MEDICAL CARE RENAL THERAPIES GROUP-FMC-1710-001180

PATIENT
  Age: 56 Year
  Sex: Female
  Weight: 116.22 kg

DRUGS (14)
  1. GABAPENTIN. [Concomitant]
     Active Substance: GABAPENTIN
  2. DELFLEX WITH DEXTROSE 2.5% LOW MAGNESIUM LOW CALCIUM [Suspect]
     Active Substance: CALCIUM CHLORIDE\DEXTROSE\MAGNESIUM CHLORIDE\SODIUM CHLORIDE\SODIUM LACTATE
     Indication: END STAGE RENAL DISEASE
     Route: 033
     Dates: start: 20170410
  3. RENVELA [Concomitant]
     Active Substance: SEVELAMER CARBONATE
  4. ASPIRIN. [Concomitant]
     Active Substance: ASPIRIN
  5. DIALYVITE [Concomitant]
     Active Substance: ASCORBIC ACID\BIOTIN\CALCIUM PANTOTHENATE\COBALAMIN\FOLIC ACID\NIACINAMIDE\PYRIDOXINE HYDROCHLORIDE\RIBOFLAVIN\THIAMINE MONONITRATE
  6. ATORVASTATIN [Concomitant]
     Active Substance: ATORVASTATIN
  7. NOVOLOG [Concomitant]
     Active Substance: INSULIN ASPART
  8. PLAVIX [Concomitant]
     Active Substance: CLOPIDOGREL BISULFATE
  9. BASAGLAR [Concomitant]
     Active Substance: INSULIN GLARGINE
  10. COREG [Concomitant]
     Active Substance: CARVEDILOL
  11. NEURONTIN [Concomitant]
     Active Substance: GABAPENTIN
  12. ADALAT [Concomitant]
     Active Substance: NIFEDIPINE
  13. HUMALOG [Concomitant]
     Active Substance: INSULIN LISPRO
     Dates: start: 20160606
  14. LASIX [Concomitant]
     Active Substance: FUROSEMIDE

REACTIONS (3)
  - Pleural effusion [Recovering/Resolving]
  - Pneumonia [Recovering/Resolving]
  - Sepsis [Recovering/Resolving]

NARRATIVE: CASE EVENT DATE: 20170923
